FAERS Safety Report 9314514 (Version 2)
Quarter: 2013Q3

REPORT INFORMATION
  Report Type: Spontaneous
  Country: US (occurrence: US)
  Receive Date: 20130529
  Receipt Date: 20130826
  Transmission Date: 20140515
  Serious: Yes (Death, Other)
  Sender: FDA-Public Use
  Company Number: US-PFIZER INC-2013159727

PATIENT
  Age: 60 Year
  Sex: Male
  Weight: 100 kg

DRUGS (23)
  1. INLYTA [Suspect]
     Indication: RENAL CANCER
     Dosage: 5 MG, 2X/DAY (BID)
     Route: 048
     Dates: start: 20130315, end: 20130503
  2. CLONIDINE HYDROCHLORIDE [Concomitant]
     Dosage: 0.3 MG, 3X/DAY (TID)
     Route: 048
  3. CYANOCOBALAMIN [Concomitant]
     Dosage: 1000 MCG, WEEKLY
     Route: 058
  4. ALLOPURINOL [Concomitant]
     Dosage: 100 MG, 1X/DAY (DAILY)
     Route: 048
  5. COLCHICINE [Concomitant]
     Dosage: 0.6 MG, 1X/DAY (DAILY)
     Route: 048
  6. FLOMAX [Concomitant]
     Dosage: 0.4 MG, 1X/DAY (DAILY) AS DIRECTED
     Route: 048
  7. FLUOXETINE HYDROCHLORIDE [Concomitant]
     Dosage: 20 MG, 1X/DAY (DAILY)
     Route: 048
  8. FUROSEMIDE [Concomitant]
     Dosage: 40 MG, AS DIRECTED
     Route: 048
     Dates: end: 20130503
  9. GLYBURIDE [Concomitant]
     Dosage: 5 MG, 2X/DAY (BID)
     Route: 048
  10. LYRICA [Concomitant]
     Dosage: 225 MG, 1X/DAY (DAILY)
     Route: 048
  11. MAGIC MOUTHWASH [Concomitant]
     Indication: PAIN
     Dosage: 10 ML, SWISH AND SWALLOW AC AND HS PRN
  12. METOCLOPRAMIDE HYDROCHLORIDE [Concomitant]
     Indication: NAUSEA
     Dosage: 10 MG, Q4-6H PRN
     Route: 048
  13. METOPROLOL TARTRATE [Concomitant]
     Dosage: 100 MG, 1X/DAY (DAILY)
     Route: 048
  14. MINOXIDIL [Concomitant]
     Dosage: 2.5 MG TABLETS, 2 DF BID
     Route: 048
  15. NEXIUM [Concomitant]
     Dosage: 40 MG, 1X/DAY (DAILY)
     Route: 048
  16. NIFEDIPINE [Concomitant]
     Dosage: 10 MG, 3X/DAY (TID)
     Route: 048
  17. NITROGLYCERIN [Concomitant]
     Dosage: 2 %, Q6H PRN
     Route: 061
  18. NYSTATIN [Concomitant]
     Dosage: 100000/G, TAKE 5 IU, 4X/DAY (QID)
     Route: 061
  19. OMEPRAZOLE [Concomitant]
     Dosage: 40 MG, 1X/DAY (DAILY)
     Route: 048
  20. OXYCODONE HYDROCHLORIDE/ACETAMINOPHEN [Concomitant]
     Indication: PAIN
     Dosage: 10MG-325MG, Q4H PRN
     Route: 048
  21. PREDNISONE [Concomitant]
     Dosage: UNK
     Route: 048
  22. SYNTHROID [Concomitant]
     Dosage: 150 MCG TABLETS, 2  DF DAILY
  23. BENAZEPRIL [Concomitant]
     Dosage: UNK
     Dates: end: 20130503

REACTIONS (11)
  - Myocardial infarction [Fatal]
  - Loss of consciousness [Unknown]
  - Dehydration [Recovered/Resolved]
  - Headache [Unknown]
  - Dizziness [Unknown]
  - Chest pain [Not Recovered/Not Resolved]
  - Arthralgia [Unknown]
  - Cough [Not Recovered/Not Resolved]
  - Dyspnoea [Not Recovered/Not Resolved]
  - Fatigue [Unknown]
  - Asthenia [Not Recovered/Not Resolved]
